FAERS Safety Report 7922042 (Version 4)
Quarter: 2013Q2

REPORT INFORMATION
  Report Type: Spontaneous
  Country: US (occurrence: US)
  Receive Date: 20110429
  Receipt Date: 20130501
  Transmission Date: 20140414
  Serious: Yes (Other)
  Sender: FDA-Public Use
  Company Number: US-ASTRAZENECA-2010SE59084

PATIENT
  Age: 60 Year
  Sex: Female

DRUGS (2)
  1. NEXIUM [Suspect]
     Dosage: 20 MG AND 40 MG
     Route: 048
  2. PREDNISONE [Concomitant]

REACTIONS (9)
  - Road traffic accident [Unknown]
  - Head injury [Unknown]
  - Craniocerebral injury [Unknown]
  - Liver disorder [Unknown]
  - Influenza [Unknown]
  - Infectious mononucleosis [Unknown]
  - Narcolepsy [Unknown]
  - Visual impairment [Unknown]
  - Somnolence [Unknown]
